FAERS Safety Report 9514323 (Version 1)
Quarter: 2013Q3

REPORT INFORMATION
  Report Type: Spontaneous
  Country: CA (occurrence: CA)
  Receive Date: 20130911
  Receipt Date: 20130911
  Transmission Date: 20140515
  Serious: Yes (Other)
  Sender: FDA-Public Use
  Company Number: CA-JNJFOC-20130900428

PATIENT
  Sex: 0

DRUGS (1)
  1. LISTERINE (UNSPECIFIED) [Suspect]
     Indication: DRUG ADMINISTERED AT INAPPROPRIATE SITE
     Route: 048

REACTIONS (2)
  - Drug abuse [Unknown]
  - Incorrect route of drug administration [Unknown]
